FAERS Safety Report 8395372-X (Version None)
Quarter: 2012Q2

REPORT INFORMATION
  Report Type: 
  Country: None (occurrence: None)
  Receive Date: 20120525
  Receipt Date: 20120525
  Transmission Date: 20120825
  Serious: No
  Sender: FDA-Public Use
  Company Number: None

PATIENT
  Sex: Female

DRUGS (1)
  1. PREDNISONE [Suspect]
     Dosage: 60MG X 1, 50MG X 1, 40MG X 1, 30MG X 1, 20MG X 1, 10MG X 1

REACTIONS (5)
  - OEDEMA PERIPHERAL [None]
  - VISION BLURRED [None]
  - DIZZINESS [None]
  - DYSPEPSIA [None]
  - PARAESTHESIA [None]
